FAERS Safety Report 15339415 (Version 1)
Quarter: 2018Q3

REPORT INFORMATION
  Report Type: Spontaneous
  Country: US (occurrence: US)
  Receive Date: 20180827
  Receipt Date: 20180827
  Transmission Date: 20181010
  Serious: No
  Sender: FDA-Public Use
  Company Number: None

PATIENT
  Age: 54 Year
  Sex: Female

DRUGS (1)
  1. OTREXUP [Suspect]
     Active Substance: METHOTREXATE
     Indication: PULMONARY HYPERTENSION
     Route: 058
     Dates: start: 20180809, end: 20180816

REACTIONS (8)
  - Feeling hot [None]
  - Palpitations [None]
  - Diarrhoea [None]
  - Vomiting [None]
  - Chills [None]
  - Hyperhidrosis [None]
  - Asthenia [None]
  - Chest discomfort [None]

NARRATIVE: CASE EVENT DATE: 20180809
